FAERS Safety Report 12315367 (Version 1)
Quarter: 2016Q2

REPORT INFORMATION
  Report Type: Spontaneous
  Country: GR (occurrence: GR)
  Receive Date: 20160428
  Receipt Date: 20160428
  Transmission Date: 20160815
  Serious: Yes (Death, Hospitalization)
  Sender: FDA-Public Use
  Company Number: GR-B.I. PHARMACEUTICALS,INC./RIDGEFIELD-2016-BI-26461GB

PATIENT
  Age: 56 Year
  Sex: Female

DRUGS (8)
  1. LONALGAL [Concomitant]
     Active Substance: ACETAMINOPHEN\CODEINE PHOSPHATE
     Indication: PRODUCT USED FOR UNKNOWN INDICATION
     Route: 065
  2. NIVESTIM [Concomitant]
     Active Substance: FILGRASTIM
     Indication: DRUG THERAPY
     Route: 065
  3. EPOETIN ZETA [Concomitant]
     Active Substance: ERYTHROPOIETIN
     Indication: ANAEMIA
     Route: 065
  4. VARGATEF [Suspect]
     Active Substance: NINTEDANIB
     Indication: NON-SMALL CELL LUNG CANCER
     Dosage: 400 MG
     Route: 048
     Dates: start: 20160411, end: 20160419
  5. TAZOCIN [Concomitant]
     Active Substance: PIPERACILLIN SODIUM\TAZOBACTAM SODIUM
     Indication: URINARY TRACT INFECTION
     Route: 065
  6. ESELAN [Concomitant]
     Indication: GASTRITIS PROPHYLAXIS
     Dosage: 40 MG
     Route: 065
  7. LYRICA [Concomitant]
     Active Substance: PREGABALIN
     Indication: PRODUCT USED FOR UNKNOWN INDICATION
     Dosage: 25 MG
     Route: 048
  8. CYMBALTA [Concomitant]
     Active Substance: DULOXETINE HYDROCHLORIDE
     Indication: PRODUCT USED FOR UNKNOWN INDICATION
     Dosage: 30 MG
     Route: 048

REACTIONS (7)
  - Hyperhidrosis [Unknown]
  - Abdominal pain [Unknown]
  - Tachypnoea [Unknown]
  - Pallor [Unknown]
  - Large intestine perforation [Fatal]
  - Cardio-respiratory arrest [Fatal]
  - Tachycardia [Unknown]

NARRATIVE: CASE EVENT DATE: 20160418
